FAERS Safety Report 17769555 (Version 1)
Quarter: 2020Q2

REPORT INFORMATION
  Report Type: Spontaneous
  Country: US (occurrence: US)
  Receive Date: 20200511
  Receipt Date: 20200511
  Transmission Date: 20200714
  Serious: Yes (Hospitalization)
  Sender: FDA-Public Use
  Company Number: None

PATIENT
  Sex: Female

DRUGS (8)
  1. CHOLESTYRAMI [Concomitant]
  2. SENSIPAR [Suspect]
     Active Substance: CINACALCET HYDROCHLORIDE
     Indication: PRODUCT USED FOR UNKNOWN INDICATION
     Route: 048
     Dates: start: 20171102
  3. PROPRANOL OL [Concomitant]
     Active Substance: PROPRANOLOL HYDROCHLORIDE
  4. STOOL SOFTNR [Concomitant]
  5. TRAMADOL HCL [Concomitant]
     Active Substance: TRAMADOL HYDROCHLORIDE
  6. VITAMIN C [Concomitant]
     Active Substance: ASCORBIC ACID
  7. FAMOTIDINE. [Concomitant]
     Active Substance: FAMOTIDINE
  8. NIFEDIPINE. [Concomitant]
     Active Substance: NIFEDIPINE

REACTIONS (1)
  - Ill-defined disorder [None]
